FAERS Safety Report 5568186-3 (Version None)
Quarter: 2007Q4

REPORT INFORMATION
  Report Type: 
  Country: None (occurrence: None)
  Receive Date: 20071220
  Receipt Date: 20071218
  Transmission Date: 20080405
  Serious: Yes (Death, Life-Threatening, Hospitalization)
  Sender: FDA-Public Use
  Company Number: US-BRISTOL-MYERS SQUIBB COMPANY-14018154

PATIENT
  Age: 55 Year
  Sex: Male

DRUGS (16)
  1. STAVUDINE [Suspect]
     Indication: HIV INFECTION
     Route: 048
     Dates: start: 20061204
  2. PREZISTA [Suspect]
     Indication: HIV INFECTION
     Dosage: DOSAGE FORM=TABLETS
     Route: 048
     Dates: start: 20061204, end: 20070614
  3. TMC125 [Suspect]
     Indication: HIV INFECTION
     Dosage: TABLETS
     Route: 048
     Dates: start: 20061204, end: 20070614
  4. RITONAVIR [Suspect]
     Indication: HIV INFECTION
     Dosage: CAPSULES
     Route: 048
     Dates: start: 20061204, end: 20070614
  5. ATARAX [Concomitant]
     Route: 048
     Dates: start: 20061227
  6. VIAGRA [Concomitant]
     Indication: ERECTILE DYSFUNCTION
     Dosage: 1 AS NECESSARY
     Route: 065
     Dates: start: 20070221
  7. ZYRTEC [Concomitant]
     Indication: HYPERSENSITIVITY
     Route: 048
  8. HYDROCHLOROTHIAZIDE [Concomitant]
     Indication: HYPERTENSION
     Route: 048
  9. BACTRIM [Concomitant]
     Indication: ANTIFUNGAL PROPHYLAXIS
     Dosage: TABLETS
     Route: 048
  10. POTASSIUM CHLORIDE [Concomitant]
     Route: 048
     Dates: start: 20070607
  11. POTASSIUM CHLORIDE [Concomitant]
     Route: 042
     Dates: start: 20070607
  12. REGULAR INSULIN [Concomitant]
     Route: 042
     Dates: start: 20070607
  13. SODIUM CHLORIDE 0.9% [Concomitant]
     Route: 042
     Dates: start: 20070607
  14. ROBITUSSIN AC [Concomitant]
     Dosage: 1 AS NECESSARY
     Route: 048
     Dates: start: 20070607
  15. PROVENTIL [Concomitant]
     Route: 065
     Dates: start: 20070607
  16. ACIPHEX [Concomitant]
     Route: 048
     Dates: start: 20070613

REACTIONS (4)
  - HEPATITIS [None]
  - LACTIC ACIDOSIS [None]
  - PANCREATITIS [None]
  - RENAL FAILURE [None]
